FAERS Safety Report 8014920-2 (Version None)
Quarter: 2011Q4

REPORT INFORMATION
  Report Type: 
  Country: None (occurrence: None)
  Receive Date: 20111229
  Receipt Date: 20111220
  Transmission Date: 20120403
  Serious: Yes (Death, Hospitalization)
  Sender: FDA-Public Use
  Company Number: JP-ROCHE-605252

PATIENT
  Sex: Male
  Weight: 65.7 kg

DRUGS (8)
  1. BASEN [Concomitant]
     Route: 048
  2. ACTEMRA [Suspect]
     Route: 041
     Dates: start: 20080922, end: 20080922
  3. MUCODYNE [Concomitant]
     Route: 048
  4. ACTEMRA [Suspect]
     Route: 041
     Dates: start: 20081020, end: 20081020
  5. CELECOXIB [Concomitant]
     Dosage: DRUG NAME REPORTED AS CELECOX
     Route: 048
  6. MICARDIS [Concomitant]
     Route: 048
  7. ACTEMRA [Suspect]
     Indication: RHEUMATOID ARTHRITIS
     Route: 041
     Dates: start: 20080730, end: 20080730
  8. CLARITHROMYCIN [Concomitant]
     Dosage: ORAL FORMULATION NOS
     Route: 048

REACTIONS (7)
  - PLATELET COUNT DECREASED [None]
  - SEPSIS [None]
  - MYOCARDITIS [None]
  - RENAL FAILURE ACUTE [None]
  - CIRCULATORY COLLAPSE [None]
  - HEPATIC FUNCTION ABNORMAL [None]
  - UPPER RESPIRATORY TRACT INFLAMMATION [None]
